FAERS Safety Report 10342531 (Version 1)
Quarter: 2014Q3

REPORT INFORMATION
  Report Type: Spontaneous
  Country: ES (occurrence: ES)
  Receive Date: 20140725
  Receipt Date: 20140725
  Transmission Date: 20150326
  Serious: Yes (Other)
  Sender: FDA-Public Use
  Company Number: PHHY2014ES091301

PATIENT
  Age: 41 Year
  Sex: Male

DRUGS (9)
  1. LEUCOVORIN CALCIUM. [Suspect]
     Active Substance: LEUCOVORIN CALCIUM
     Indication: ANGIOCENTRIC LYMPHOMA
  2. METHOTREXATE [Suspect]
     Active Substance: METHOTREXATE
     Indication: ANGIOCENTRIC LYMPHOMA
     Dosage: 3 G/M2
  3. CYTARABINE. [Suspect]
     Active Substance: CYTARABINE
     Indication: ANGIOCENTRIC LYMPHOMA
     Dosage: 100 MG/M2, DAILY
  4. CYTARABINE. [Suspect]
     Active Substance: CYTARABINE
     Route: 039
  5. HYDROCORTISONE. [Suspect]
     Active Substance: HYDROCORTISONE
     Indication: ANGIOCENTRIC LYMPHOMA
     Route: 037
  6. ETOPOSIDE. [Suspect]
     Active Substance: ETOPOSIDE
     Indication: ANGIOCENTRIC LYMPHOMA
     Dosage: 150 MG/M2, DAILY
  7. IFOSFAMIDE. [Suspect]
     Active Substance: IFOSFAMIDE
     Indication: ANGIOCENTRIC LYMPHOMA
     Dosage: 1500 MG/M2, UNK
  8. MESNA. [Suspect]
     Active Substance: MESNA
     Indication: ANGIOCENTRIC LYMPHOMA
  9. METHOTREXATE [Suspect]
     Active Substance: METHOTREXATE
     Route: 037

REACTIONS (8)
  - Speech disorder [Unknown]
  - Nystagmus [Unknown]
  - Hydrocephalus [Unknown]
  - Epstein-Barr virus infection [Recovering/Resolving]
  - Somnolence [Unknown]
  - Cell-mediated immune deficiency [Unknown]
  - Neurological decompensation [Unknown]
  - Epstein-Barr virus test positive [Recovering/Resolving]
